FAERS Safety Report 19226238 (Version 3)
Quarter: 2021Q3

REPORT INFORMATION
  Report Type: Spontaneous
  Country: US (occurrence: US)
  Receive Date: 20210506
  Receipt Date: 20210825
  Transmission Date: 20211014
  Serious: Yes (Other)
  Sender: FDA-Public Use
  Company Number: US-IGSA-BIG0014294

PATIENT
  Age: 41 Year
  Sex: Female
  Weight: 72.56 kg

DRUGS (7)
  1. MESTINON [Concomitant]
     Active Substance: PYRIDOSTIGMINE BROMIDE
  2. GABAPENTIN. [Concomitant]
     Active Substance: GABAPENTIN
  3. LAMICTAL [Concomitant]
     Active Substance: LAMOTRIGINE
  4. ALDACTONE [POTASSIUM CANRENOATE] [Concomitant]
     Active Substance: CANRENOATE POTASSIUM
  5. GAMUNEX?C [Suspect]
     Active Substance: HUMAN IMMUNOGLOBULIN G
     Indication: PRIMARY IMMUNODEFICIENCY SYNDROME
     Dosage: 10 GRAM, Q.WK.
     Route: 042
     Dates: start: 202106
  6. GAMUNEX?C [Suspect]
     Active Substance: HUMAN IMMUNOGLOBULIN G
     Indication: POLYNEUROPATHY
     Dosage: 35 GRAM
     Route: 042
     Dates: start: 20191101
  7. MIDODRINE [Concomitant]
     Active Substance: MIDODRINE

REACTIONS (20)
  - Throat irritation [Unknown]
  - Disorientation [Unknown]
  - Migraine [Unknown]
  - Cough [Unknown]
  - Rash [Recovered/Resolved]
  - Muscle spasms [Unknown]
  - Dyspnoea [Unknown]
  - Pruritus [Recovered/Resolved]
  - Muscular weakness [Unknown]
  - Rash [Recovered/Resolved]
  - Dehydration [Unknown]
  - Peripheral swelling [Recovered/Resolved]
  - Oxygen saturation decreased [Recovered/Resolved]
  - Urticaria [Recovered/Resolved]
  - Therapeutic product effect decreased [Unknown]
  - Throat irritation [Recovered/Resolved]
  - Lethargy [Unknown]
  - Myalgia [Unknown]
  - Sinusitis [Unknown]
  - Headache [Unknown]

NARRATIVE: CASE EVENT DATE: 20210101
